FAERS Safety Report 5272383-4 (Version None)
Quarter: 2007Q1

REPORT INFORMATION
  Report Type: 
  Country: None (occurrence: None)
  Receive Date: 20070320
  Receipt Date: 20070320
  Transmission Date: 20070707
  Serious: Yes (Life-Threatening, Hospitalization, Disabling, Other)
  Sender: FDA-Public Use
  Company Number: None

PATIENT
  Sex: Female
  Weight: 63.5036 kg

DRUGS (3)
  1. VYTORIN [Suspect]
     Indication: ANGINA UNSTABLE
     Dosage: 1 DAY PO
     Route: 048
     Dates: start: 20060801, end: 20070116
  2. VYTORIN [Suspect]
     Indication: BLOOD CHOLESTEROL INCREASED
     Dosage: 1 DAY PO
     Route: 048
     Dates: start: 20060801, end: 20070116
  3. VYTORIN [Suspect]
     Indication: CARDIAC DISORDER
     Dosage: 1 DAY PO
     Route: 048
     Dates: start: 20060801, end: 20070116

REACTIONS (3)
  - ACTIVITIES OF DAILY LIVING IMPAIRED [None]
  - DIARRHOEA [None]
  - MUSCLE SPASMS [None]
